FAERS Safety Report 7931398 (Version 5)
Quarter: 2013Q3

REPORT INFORMATION
  Report Type: Report from Study
  Country: US (occurrence: US)
  Receive Date: 20110505
  Receipt Date: 20130910
  Transmission Date: 20140515
  Serious: Yes (Other)
  Sender: FDA-Public Use
  Company Number: PHHY2011US33053

PATIENT
  Age: 51 Year
  Sex: Female

DRUGS (6)
  1. GILENYA [Suspect]
     Indication: MULTIPLE SCLEROSIS
     Dosage: 0.5 MG, QD
     Route: 048
     Dates: start: 20110405, end: 20110426
  2. GILENYA [Suspect]
     Dosage: 0.5 MG, QD
     Route: 048
  3. FAMPRIDINE [Concomitant]
     Dosage: UNK UKN, UNK
  4. AVALIDE [Concomitant]
     Dosage: UNK UKN, UNK
  5. EFFEXOR [Concomitant]
     Dosage: UNK UKN, UNK
  6. VITAMINS [Concomitant]

REACTIONS (4)
  - Eye discharge [Recovered/Resolved]
  - Blepharospasm [Recovered/Resolved]
  - White blood cell count decreased [Recovering/Resolving]
  - Lymphocyte count decreased [Recovering/Resolving]
